FAERS Safety Report 24712649 (Version 1)
Quarter: 2024Q4

REPORT INFORMATION
  Report Type: Spontaneous
  Country: CN (occurrence: CN)
  Receive Date: 20241209
  Receipt Date: 20241209
  Transmission Date: 20250115
  Serious: Yes (Life-Threatening, Other)
  Sender: BAYER HEALTHCARE PHARMACEUTICALS INC.
  Company Number: CN-BAYER-2024A173927

PATIENT
  Age: 45 Year
  Sex: Male
  Weight: 80 kg

DRUGS (1)
  1. ULTRAVIST [Suspect]
     Active Substance: IOPROMIDE
     Indication: Angiocardiogram
     Dosage: 75 ML, ONCE, AT A PUSH SPEED 5.5ML/S
     Route: 042
     Dates: start: 20241204, end: 20241204

REACTIONS (7)
  - Anaphylactoid reaction [Recovering/Resolving]
  - Musculoskeletal stiffness [None]
  - Aphasia [None]
  - Rash erythematous [Recovered/Resolved]
  - Heart rate increased [Recovering/Resolving]
  - Oxygen saturation decreased [Recovered/Resolved]
  - Respiratory rate increased [Recovering/Resolving]

NARRATIVE: CASE EVENT DATE: 20241204
